FAERS Safety Report 17094754 (Version 4)
Quarter: 2020Q3

REPORT INFORMATION
  Report Type: Report from Study
  Country: None (occurrence: US)
  Receive Date: 20191130
  Receipt Date: 20200812
  Transmission Date: 20201102
  Serious: Yes (Hospitalization, Other)
  Sender: FDA-Public Use
  Company Number: US-ABBVIE-19K-163-3171589-00

PATIENT
  Age: 59 Year
  Sex: Female

DRUGS (3)
  1. HUMIRA [Suspect]
     Active Substance: ADALIMUMAB
     Indication: RHEUMATOID ARTHRITIS
     Dosage: CITRATE FREE
     Route: 058
  2. HUMIRA [Suspect]
     Active Substance: ADALIMUMAB
     Route: 058
  3. HUMIRA [Suspect]
     Active Substance: ADALIMUMAB
     Indication: RHEUMATOID ARTHRITIS
     Route: 058

REACTIONS (18)
  - Balance disorder [Unknown]
  - Tendonitis [Not Recovered/Not Resolved]
  - Intervertebral disc protrusion [Unknown]
  - Back pain [Unknown]
  - Nerve compression [Unknown]
  - Musculoskeletal stiffness [Unknown]
  - Fall [Unknown]
  - Urinary tract infection [Unknown]
  - Arthralgia [Unknown]
  - Drug ineffective [Not Recovered/Not Resolved]
  - Spinal operation [Recovering/Resolving]
  - Blood pressure fluctuation [Unknown]
  - Discomfort [Unknown]
  - Mycobacterium tuberculosis complex test positive [Unknown]
  - Wound secretion [Unknown]
  - Depression [Unknown]
  - Pain in extremity [Unknown]
  - Procedural pain [Unknown]

NARRATIVE: CASE EVENT DATE: 20180826
